FAERS Safety Report 25402725 (Version 1)
Quarter: 2025Q2

REPORT INFORMATION
  Report Type: Spontaneous
  Country: JP (occurrence: JP)
  Receive Date: 20250605
  Receipt Date: 20250605
  Transmission Date: 20250717
  Serious: Yes (Other)
  Sender: MERCK SHARP & DOHME LLC
  Company Number: JP-009507513-2292176

PATIENT
  Age: 79 Year
  Sex: Male

DRUGS (4)
  1. KEYTRUDA [Suspect]
     Active Substance: PEMBROLIZUMAB
     Indication: Metastatic renal cell carcinoma
     Dosage: 200 MG Q3W (5 COURSES), STARTED IN FEBRUARY OF UNKNOWN YEAR, STOPPED IN JULY OF UNKNOWN YEAR (DUE...
  2. KEYTRUDA [Suspect]
     Active Substance: PEMBROLIZUMAB
     Indication: Metastatic renal cell carcinoma
     Dosage: 200 MG Q3W (5 COURSES), RESUMED IN AUGUST OF UNKNOWN YEAR (TOTAL DURATION OF TREATMENT 10 MONTHS)
  3. LENVATINIB MESYLATE [Suspect]
     Active Substance: LENVATINIB MESYLATE
     Indication: Metastatic renal cell carcinoma
     Dosage: 14 MG/DAY, STARTED IN FEBRUARY OF UNKNOWN YEAR, STOPPED IN JULY OF UNKNOWN YEAR (DUE TO POSITIVE ...
  4. LENVATINIB MESYLATE [Suspect]
     Active Substance: LENVATINIB MESYLATE
     Indication: Metastatic renal cell carcinoma
     Dosage: 14 MG/DAY, RESUMED IN AUGUST OF UNKNOWN YEAR (TOTAL DURATION OF TREATMENT 10 MONTHS)

REACTIONS (6)
  - Malignant neoplasm progression [Unknown]
  - Hypothyroidism [Unknown]
  - Hypertension [Unknown]
  - Nephrectomy [Unknown]
  - Therapy partial responder [Unknown]
  - COVID-19 [Unknown]
